FAERS Safety Report 5035565-2 (Version None)
Quarter: 2006Q2

REPORT INFORMATION
  Report Type: 
  Country: None (occurrence: None)
  Receive Date: 20060526
  Receipt Date: 20060208
  Transmission Date: 20061013
  Serious: Yes (Other)
  Sender: FDA-Public Use
  Company Number: FABR-11382

PATIENT
  Age: 18 Year
  Sex: Male
  Weight: 60 kg

DRUGS (4)
  1. FABRAZYME [Suspect]
     Indication: FABRY'S DISEASE
     Dosage: SEE IMAGE
     Route: 042
     Dates: start: 20040210, end: 20040824
  2. FABRAZYME [Suspect]
     Indication: FABRY'S DISEASE
     Dosage: SEE IMAGE
     Route: 042
     Dates: start: 20051001
  3. BENADRYL [Concomitant]
  4. ACETAMINOPHEN [Concomitant]

REACTIONS (2)
  - BLOOD IMMUNOGLOBULIN E INCREASED [None]
  - URTICARIA [None]
